FAERS Safety Report 14665800 (Version 2)
Quarter: 2018Q2

REPORT INFORMATION
  Report Type: Spontaneous
  Country: US (occurrence: US)
  Receive Date: 20180321
  Receipt Date: 20180426
  Transmission Date: 20180711
  Serious: Yes (Other)
  Sender: FDA-Public Use
  Company Number: US-SA-2018SA078435

PATIENT
  Age: 79 Year
  Sex: Female
  Weight: 90.7 kg

DRUGS (2)
  1. SOLOSTAR [Suspect]
     Active Substance: DEVICE
     Indication: DIABETES MELLITUS
     Dates: start: 2014
  2. LANTUS SOLOSTAR [Suspect]
     Active Substance: INSULIN GLARGINE
     Indication: DIABETES MELLITUS
     Dosage: DOSE:35 UNIT(S)
     Route: 051
     Dates: start: 2014

REACTIONS (7)
  - Back disorder [Unknown]
  - Carotid artery occlusion [Unknown]
  - Product use issue [Unknown]
  - Knee arthroplasty [Unknown]
  - Basal cell carcinoma [Unknown]
  - Cardiac disorder [Unknown]
  - Stent placement [Unknown]
